FAERS Safety Report 6921520-1 (Version None)
Quarter: 2010Q3

REPORT INFORMATION
  Report Type: 
  Country: None (occurrence: None)
  Receive Date: 20100805
  Receipt Date: 20100413
  Transmission Date: 20110219
  Serious: No
  Sender: FDA-Public Use
  Company Number: US-001916

PATIENT
  Sex: Male
  Weight: 86.1834 kg

DRUGS (10)
  1. DEGARELIX 240 MG [Suspect]
     Indication: PROSTATE CANCER
     Dosage: (240 MG 1X/MONTH SUBCUTANEOUS)
     Route: 058
     Dates: start: 20100216, end: 20100216
  2. VYTORIN [Concomitant]
  3. ASCORBIC ACID [Concomitant]
  4. ERGOCALCIFEROL [Concomitant]
  5. TOCOPHEROL CONCENTRATE CAP [Concomitant]
  6. VITAMIN B12 GATTIKER [Concomitant]
  7. LISINOPRIL [Concomitant]
  8. FISH OIL [Concomitant]
  9. ASPIRINA /00002701/ [Concomitant]
  10. BICALUTAMIDE [Concomitant]

REACTIONS (1)
  - OEDEMA PERIPHERAL [None]
